FAERS Safety Report 24073145 (Version 1)
Quarter: 2024Q3

REPORT INFORMATION
  Report Type: Spontaneous
  Country: US (occurrence: None)
  Receive Date: 20240710
  Receipt Date: 20240710
  Transmission Date: 20241016
  Serious: Yes (Hospitalization)
  Sender: Public
  Company Number: None

PATIENT
  Age: 67 Year
  Sex: Female
  Weight: 72.2 kg

DRUGS (1)
  1. VYXEOS [Suspect]
     Active Substance: CYTARABINE\DAUNORUBICIN

REACTIONS (15)
  - Asthenia [None]
  - Cough [None]
  - Rhonchi [None]
  - Dyspnoea at rest [None]
  - Tachypnoea [None]
  - Lung consolidation [None]
  - Pleural effusion [None]
  - Pulmonary oedema [None]
  - Hypoxia [None]
  - Cerebral haemorrhage [None]
  - Platelet count decreased [None]
  - Neutrophil count decreased [None]
  - Haemoglobin decreased [None]
  - Lip disorder [None]
  - Subdural haemorrhage [None]

NARRATIVE: CASE EVENT DATE: 20240523
